FAERS Safety Report 5505215-7 (Version None)
Quarter: 2007Q4

REPORT INFORMATION
  Report Type: 
  Country: None (occurrence: None)
  Receive Date: 20071031
  Receipt Date: 20071022
  Transmission Date: 20080405
  Serious: Yes (Other)
  Sender: FDA-Public Use
  Company Number: 2007333642

PATIENT
  Age: 2 Year
  Sex: Male

DRUGS (1)
  1. PEDIACARE DECONGESTANT (PSEUDOEPHEDRINE) [Suspect]
     Indication: COUGH
     Dosage: ONCE, ORAL
     Route: 048

REACTIONS (1)
  - DYSPNOEA [None]
